FAERS Safety Report 9678348 (Version 2)
Quarter: 2013Q4

REPORT INFORMATION
  Report Type: Report from Study
  Country: US (occurrence: US)
  Receive Date: 20131108
  Receipt Date: 20131118
  Transmission Date: 20140711
  Serious: Yes (Death)
  Sender: FDA-Public Use
  Company Number: US-ACTELION-A-US2013-91028

PATIENT
  Age: 65 Year
  Sex: Female

DRUGS (9)
  1. VENTAVIS [Suspect]
     Indication: PULMONARY ARTERIAL HYPERTENSION
     Dosage: UNK, 6X/DAILY
     Route: 055
     Dates: end: 20131017
  2. REVATIO [Concomitant]
     Dosage: 20 MG, UNK
  3. LETAIRIS [Concomitant]
     Dosage: 10 MG, UNK
  4. LASIX [Concomitant]
     Dosage: 40 MG, BID
  5. ALDACTONE [Concomitant]
     Dosage: 50 MG, UNK
  6. PLAVIX [Concomitant]
     Dosage: 75 MG, UNK
  7. SYNTHROID [Concomitant]
     Dosage: 75 MCG, QD
  8. METOLAZONE [Concomitant]
     Dosage: 2.5 MG, UNK
  9. CRESTOR [Concomitant]
     Dosage: 20 MG, UNK

REACTIONS (11)
  - Pulmonary arterial hypertension [Fatal]
  - Condition aggravated [Fatal]
  - Dyspnoea exertional [Fatal]
  - Weight increased [Fatal]
  - Dyspnoea [Fatal]
  - Fatigue [Fatal]
  - Asthenia [Fatal]
  - Acute respiratory failure [Fatal]
  - Cardio-respiratory arrest [Fatal]
  - Depression [Unknown]
  - Brain natriuretic peptide increased [Unknown]
